FAERS Safety Report 11080568 (Version 2)
Quarter: 2015Q2

REPORT INFORMATION
  Report Type: Report from Study
  Country: CA (occurrence: CA)
  Receive Date: 20150501
  Receipt Date: 20150518
  Transmission Date: 20150821
  Serious: Yes (Hospitalization, Other)
  Sender: FDA-Public Use
  Company Number: CA-ROCHE-1468742

PATIENT
  Sex: Male

DRUGS (17)
  1. ONEALFA [Concomitant]
     Active Substance: ALFACALCIDOL
  2. COLACE [Concomitant]
     Active Substance: DOCUSATE SODIUM
  3. TYLENOL [Concomitant]
     Active Substance: ACETAMINOPHEN
     Route: 048
     Dates: start: 20140909
  4. OXAZEPAM. [Concomitant]
     Active Substance: OXAZEPAM
  5. NITRO SPRAY [Concomitant]
  6. ROSUVASTATIN [Concomitant]
     Active Substance: ROSUVASTATIN
  7. AMLODIPINE [Concomitant]
     Active Substance: AMLODIPINE BESYLATE
  8. PANTOLOC [Concomitant]
     Active Substance: PANTOPRAZOLE SODIUM
  9. WINPRED [Concomitant]
     Active Substance: PREDNISONE
  10. BENADRYL [Concomitant]
     Active Substance: DIPHENHYDRAMINE HYDROCHLORIDE
     Route: 048
     Dates: start: 20140909
  11. SULFATRIM [Concomitant]
     Active Substance: SULFAMETHOXAZOLE\TRIMETHOPRIM
  12. BISOPROLOL [Concomitant]
     Active Substance: BISOPROLOL
  13. RITUXAN [Suspect]
     Active Substance: RITUXIMAB
     Indication: GRANULOMATOSIS WITH POLYANGIITIS
     Route: 042
     Dates: start: 20140909
  14. SOLU-MEDROL [Concomitant]
     Active Substance: METHYLPREDNISOLONE SODIUM SUCCINATE
     Route: 042
     Dates: start: 20140909
  15. ALLOPURINOL. [Concomitant]
     Active Substance: ALLOPURINOL
  16. SODIUM BICARBONATE. [Concomitant]
     Active Substance: SODIUM BICARBONATE
  17. COUMADIN [Concomitant]
     Active Substance: WARFARIN SODIUM

REACTIONS (6)
  - Bradycardia [Unknown]
  - Blood pressure increased [Unknown]
  - Aortic valve replacement [Unknown]
  - Angina pectoris [Unknown]
  - Cardiac disorder [Unknown]
  - Fatigue [Unknown]
